FAERS Safety Report 8438420-0 (Version None)
Quarter: 2012Q2

REPORT INFORMATION
  Report Type: 
  Country: None (occurrence: None)
  Receive Date: 20120614
  Receipt Date: 20120605
  Transmission Date: 20120825
  Serious: Yes (Hospitalization)
  Sender: FDA-Public Use
  Company Number: US-ELI_LILLY_AND_COMPANY-US201012006546

PATIENT
  Sex: Female

DRUGS (25)
  1. SINGULAIR [Concomitant]
     Dosage: 10 MG, QD
  2. FORTEO [Suspect]
     Dosage: 20 UG, QD
  3. FORTEO [Suspect]
     Dosage: 20 UG, QD
  4. DILTIAZEM HCL [Concomitant]
     Dosage: 240 MG, UNKNOWN
  5. PRAVASTATIN [Concomitant]
  6. MELATONIN [Concomitant]
  7. FORTEO [Suspect]
     Dosage: 20 UG, QD
  8. LISINOPRIL AND HYDROCHLOROTHIAZIDE [Concomitant]
     Dosage: 1 DF, QD
  9. FORTEO [Suspect]
     Dosage: 20 UG, QD
     Route: 065
  10. CALCIUM 600 PLUS VITAMIN D [Concomitant]
     Dosage: 2 DF, QD
  11. ASCORBIC ACID [Concomitant]
  12. FORTEO [Suspect]
     Dosage: 20 UG, QD
  13. OXYBUTYNIN CHLORIDE [Concomitant]
     Dosage: 5 MG, TID
  14. TRAMADOL HCL [Concomitant]
     Indication: PAIN
     Dosage: 50 MG, PRN
  15. VITAMIN D [Concomitant]
     Dosage: UNK, BID
  16. VITAMIN E [Concomitant]
     Dosage: UNK, QD
  17. FORTEO [Suspect]
     Dosage: 20 UG, QD
  18. FORTEO [Suspect]
     Dosage: 20 UG, QD
  19. MULTI-VITAMIN [Concomitant]
     Dosage: UNK, QD
  20. FORTEO [Suspect]
     Indication: OSTEOPOROSIS
     Dosage: 20 UG, QD
  21. FORTEO [Suspect]
     Dosage: 20 UG, QD
     Route: 065
  22. FORTEO [Suspect]
     Dosage: 20 UG, QD
     Route: 065
  23. PENTASA [Concomitant]
     Dosage: 500 MG, EVERY 6 HRS
  24. ASPIRIN [Concomitant]
     Indication: PAIN
     Dosage: UNK, PRN
  25. ONDANSETRON HCL [Concomitant]
     Indication: NAUSEA
     Dosage: 4 MG, PRN

REACTIONS (32)
  - DYSPHAGIA [None]
  - GENERAL PHYSICAL HEALTH DETERIORATION [None]
  - BALANCE DISORDER [None]
  - ABDOMINAL PAIN UPPER [None]
  - PNEUMONIA [None]
  - HIATUS HERNIA [None]
  - SLEEP DISORDER DUE TO A GENERAL MEDICAL CONDITION [None]
  - FEELING ABNORMAL [None]
  - CONSTIPATION [None]
  - INGUINAL HERNIA [None]
  - HERNIA [None]
  - DIZZINESS POSTURAL [None]
  - DIZZINESS [None]
  - POST PROCEDURAL COMPLICATION [None]
  - BRONCHITIS [None]
  - CONTUSION [None]
  - VOMITING [None]
  - POLLAKIURIA [None]
  - MUSCULOSKELETAL STIFFNESS [None]
  - MALAISE [None]
  - WHEEZING [None]
  - FATIGUE [None]
  - URINARY TRACT OBSTRUCTION [None]
  - BLOOD PRESSURE FLUCTUATION [None]
  - EATING DISORDER [None]
  - FALL [None]
  - MUSCLE SPASMS [None]
  - POST PROCEDURAL OEDEMA [None]
  - RETCHING [None]
  - MICTURITION URGENCY [None]
  - URINARY INCONTINENCE [None]
  - GAIT DISTURBANCE [None]
